FAERS Safety Report 6255332-1 (Version None)
Quarter: 2009Q3

REPORT INFORMATION
  Report Type: 
  Country: None (occurrence: None)
  Receive Date: 20090702
  Receipt Date: 20090522
  Transmission Date: 20100115
  Serious: Yes (Life-Threatening, Hospitalization)
  Sender: FDA-Public Use
  Company Number: GB-BAXTER-2009BH010732

PATIENT
  Age: 35 Year
  Sex: Female

DRUGS (13)
  1. SEVOFLURANE [Suspect]
     Indication: MAINTENANCE OF ANAESTHESIA
     Route: 055
  2. AMIODARONE HYDROCHLORIDE [Suspect]
     Indication: HYPOTENSION
     Route: 065
  3. COCAINE [Suspect]
     Indication: ANAESTHESIA
     Route: 045
  4. EPINEPHRINE [Suspect]
     Indication: ANAESTHESIA
     Route: 045
  5. EPINEPHRINE [Suspect]
     Route: 042
  6. LIDOCAINE [Suspect]
     Indication: ANAESTHESIA
     Route: 045
  7. ONDANSETRON, UNSPECIFIED [Suspect]
     Indication: MAINTENANCE OF ANAESTHESIA
     Route: 042
  8. DICLOFENAC [Concomitant]
     Indication: DRUG USE FOR UNKNOWN INDICATION
     Route: 042
  9. FENTANYL-100 [Concomitant]
     Indication: INDUCTION OF ANAESTHESIA
     Route: 065
  10. NITROUS OXIDE [Concomitant]
     Indication: MAINTENANCE OF ANAESTHESIA
     Route: 055
  11. PROPOFOL [Concomitant]
     Indication: INDUCTION OF ANAESTHESIA
     Route: 065
  12. SODIUM BICARBONATE [Concomitant]
     Indication: DRUG USE FOR UNKNOWN INDICATION
     Route: 065
  13. OXYGEN [Concomitant]
     Indication: MAINTENANCE OF ANAESTHESIA
     Route: 055

REACTIONS (2)
  - CARDIAC ARREST [None]
  - LONG QT SYNDROME [None]
